FAERS Safety Report 24053468 (Version 1)
Quarter: 2024Q3

REPORT INFORMATION
  Report Type: Spontaneous
  Country: GB (occurrence: GB)
  Receive Date: 20240705
  Receipt Date: 20240705
  Transmission Date: 20241017
  Serious: Yes (Hospitalization)
  Sender: EMD SERONO INC
  Company Number: GB-Merck Healthcare KGaA-2024035504

PATIENT

DRUGS (1)
  1. SAIZEN [Suspect]
     Active Substance: SOMATROPIN
     Indication: Short stature

REACTIONS (5)
  - Chest pain [Unknown]
  - Dyspnoea [Unknown]
  - Hypersensitivity [Unknown]
  - Rash [Unknown]
  - Off label use [Unknown]
